FAERS Safety Report 8608797-1 (Version None)
Quarter: 2012Q3

REPORT INFORMATION
  Report Type: 
  Country: None (occurrence: None)
  Receive Date: 20120821
  Receipt Date: 20120809
  Transmission Date: 20120928
  Serious: Yes (Death, Hospitalization, Other)
  Sender: FDA-Public Use
  Company Number: JP-ROCHE-1098356

PATIENT
  Age: 78 Year
  Sex: Male

DRUGS (5)
  1. AVASTIN [Suspect]
     Indication: LUNG ADENOCARCINOMA METASTATIC
     Route: 041
     Dates: start: 20120305, end: 20120507
  2. PEMETREXED DISODIUM [Concomitant]
     Indication: LUNG ADENOCARCINOMA METASTATIC
     Dosage: DOSAGE IS UNCERTAIN.
     Route: 041
     Dates: start: 20120305, end: 20120507
  3. PEMETREXED DISODIUM [Concomitant]
     Dosage: DOSAGE IS UNCERTAIN.
     Route: 041
     Dates: start: 20120611, end: 20120709
  4. AVASTIN [Suspect]
     Dosage: DOSAGE IS UNCERTAIN.
     Route: 041
     Dates: start: 20120611, end: 20120709
  5. CARBOPLATIN [Concomitant]
     Indication: LUNG ADENOCARCINOMA METASTATIC
     Dosage: DOSAGE IS UNCERTAIN.
     Route: 041
     Dates: start: 20120305, end: 20120507

REACTIONS (10)
  - PLATELET COUNT DECREASED [None]
  - PULMONARY FIBROSIS [None]
  - RENAL DISORDER [None]
  - PNEUMONIA [None]
  - BLOOD BILIRUBIN INCREASED [None]
  - LIVER DISORDER [None]
  - INTERSTITIAL LUNG DISEASE [None]
  - CANCER PAIN [None]
  - RESPIRATORY FAILURE [None]
  - HAEMOGLOBIN DECREASED [None]
